FAERS Safety Report 6288857-3 (Version None)
Quarter: 2009Q3

REPORT INFORMATION
  Report Type: 
  Country: None (occurrence: None)
  Receive Date: 20090729
  Receipt Date: 20090717
  Transmission Date: 20100115
  Serious: Yes (Other)
  Sender: FDA-Public Use
  Company Number: US-PFIZER INC-2009229053

PATIENT
  Sex: Female
  Weight: 87.528 kg

DRUGS (5)
  1. DILANTIN [Suspect]
     Indication: PETIT MAL EPILEPSY
     Dosage: 100 MG, UNK
     Route: 048
  2. DILANTIN [Suspect]
     Indication: EPILEPSY
  3. NEURONTIN [Suspect]
     Dosage: UNK
     Dates: start: 20090623
  4. PREMARIN [Concomitant]
     Dosage: UNK
     Route: 061
  5. PREVACID [Concomitant]
     Dosage: UNK
     Route: 048

REACTIONS (17)
  - ARTHROPATHY [None]
  - DENTURE WEARER [None]
  - DIZZINESS [None]
  - DRUG INEFFECTIVE [None]
  - DRY MOUTH [None]
  - DYSARTHRIA [None]
  - DYSGEUSIA [None]
  - FATIGUE [None]
  - FEELING ABNORMAL [None]
  - GASTROOESOPHAGEAL REFLUX DISEASE [None]
  - GINGIVAL DISORDER [None]
  - HEADACHE [None]
  - NAUSEA [None]
  - PARAESTHESIA ORAL [None]
  - SOMNOLENCE [None]
  - TOOTH DISORDER [None]
  - TRANSIENT ISCHAEMIC ATTACK [None]
